FAERS Safety Report 23179131 (Version 1)
Quarter: 2023Q4

REPORT INFORMATION
  Report Type: Spontaneous
  Country: GR (occurrence: GR)
  Receive Date: 20231113
  Receipt Date: 20231113
  Transmission Date: 20240109
  Serious: Yes (Death, Other)
  Sender: FDA-Public Use
  Company Number: GR-Merck Healthcare KGaA-2023485342

PATIENT
  Age: 58 Year
  Sex: Male

DRUGS (2)
  1. ERBITUX [Suspect]
     Active Substance: CETUXIMAB
     Indication: Colon cancer metastatic
     Dosage: UNK, UNKNOWN
     Route: 065
  2. ENCORAFENIB [Concomitant]
     Active Substance: ENCORAFENIB
     Indication: Colon cancer metastatic
     Dosage: UNK, UNKNOWN
     Route: 065

REACTIONS (3)
  - Death [Fatal]
  - Malignant neoplasm progression [Unknown]
  - Off label use [Unknown]
